FAERS Safety Report 5779957-2 (Version None)
Quarter: 2008Q2

REPORT INFORMATION
  Report Type: 
  Country: None (occurrence: None)
  Receive Date: 20080620
  Receipt Date: 20080616
  Transmission Date: 20081010
  Serious: Yes (Death)
  Sender: FDA-Public Use
  Company Number: IT-JNJFOC-20080603956

PATIENT
  Age: 61 Year
  Sex: Female

DRUGS (2)
  1. ITRACONAZOLE [Suspect]
     Route: 048
  2. ITRACONAZOLE [Suspect]
     Indication: ONYCHOMYCOSIS
     Route: 048

REACTIONS (3)
  - CIRCULATORY COLLAPSE [None]
  - HEPATITIS [None]
  - TRANSPLANT REJECTION [None]
